FAERS Safety Report 4443462-6 (Version None)
Quarter: 2004Q3

REPORT INFORMATION
  Report Type: 
  Country: None (occurrence: None)
  Receive Date: 20040901
  Receipt Date: 20040817
  Transmission Date: 20050211
  Serious: Yes (Other)
  Sender: FDA-Public Use
  Company Number: 2004-BP-06434BP

PATIENT
  Age: 70 Year
  Sex: Female

DRUGS (12)
  1. AGGRENOX [Suspect]
     Indication: CEREBROVASCULAR ACCIDENT PROPHYLAXIS
     Dosage: SEE TEXT ( SEE TEXT, 25 MG/200 MG (ONE CAPSULE BID), PO
     Route: 048
     Dates: start: 20040726, end: 20040728
  2. AGGRENOX [Suspect]
     Indication: PROPHYLAXIS
     Dosage: SEE TEXT ( SEE TEXT, 25 MG/200 MG (ONE CAPSULE BID), PO
     Route: 048
     Dates: start: 20040726, end: 20040728
  3. AGGRENOX [Suspect]
     Indication: TRANSIENT ISCHAEMIC ATTACK
     Dosage: SEE TEXT ( SEE TEXT, 25 MG/200 MG (ONE CAPSULE BID), PO
     Route: 048
     Dates: start: 20040726, end: 20040728
  4. ATENOLOL [Concomitant]
  5. GLUCOPHAGE [Concomitant]
  6. LISINORPIL (LISINOPRIL) [Concomitant]
  7. METFORMIN HCL [Concomitant]
  8. AMARYL [Concomitant]
  9. ACETYLSALICYLIC ACID SRT [Concomitant]
  10. LIPITOR [Concomitant]
  11. LANTUS [Concomitant]
  12. VITAMIN CAP [Concomitant]

REACTIONS (14)
  - ABDOMINAL PAIN UPPER [None]
  - ANXIETY [None]
  - BREAST INJURY [None]
  - CAROTID ARTERY STENOSIS [None]
  - DIARRHOEA [None]
  - DIZZINESS [None]
  - FALL [None]
  - FEELING ABNORMAL [None]
  - HEADACHE [None]
  - HEART RATE IRREGULAR [None]
  - INJURY [None]
  - INSOMNIA [None]
  - JOINT INJURY [None]
  - NAUSEA [None]
